FAERS Safety Report 7512340-8 (Version None)
Quarter: 2011Q2

REPORT INFORMATION
  Report Type: 
  Country: None (occurrence: None)
  Receive Date: 20110531
  Receipt Date: 20110524
  Transmission Date: 20111010
  Serious: Yes (Other)
  Sender: FDA-Public Use
  Company Number: CN-PFIZER INC-2011110842

PATIENT
  Age: 33 Year
  Sex: Female

DRUGS (1)
  1. ZITHROMAX [Suspect]
     Indication: URINARY TRACT INFECTION
     Dosage: UNK
     Dates: start: 20110401

REACTIONS (6)
  - DYSPNOEA [None]
  - GASTRODUODENAL ULCER [None]
  - DIZZINESS [None]
  - GASTROOESOPHAGEAL REFLUX DISEASE [None]
  - PALPITATIONS [None]
  - GASTROINTESTINAL DISORDER [None]
